FAERS Safety Report 24618300 (Version 2)
Quarter: 2024Q4

REPORT INFORMATION
  Report Type: Spontaneous
  Country: US (occurrence: US)
  Receive Date: 20241114
  Receipt Date: 20241114
  Transmission Date: 20250115
  Serious: Yes (Hospitalization, Other)
  Sender: AMGEN
  Company Number: US-AMGEN-USASP2024222140

PATIENT
  Sex: Female

DRUGS (1)
  1. IMDELLTRA [Suspect]
     Active Substance: TARLATAMAB-DLLE
     Indication: Small cell lung cancer extensive stage
     Dosage: 1 MILLIGRAM, PER DOSING SCHEDULE
     Route: 040
     Dates: start: 20241107

REACTIONS (2)
  - Immune effector cell-associated neurotoxicity syndrome [Recovering/Resolving]
  - Cytokine release syndrome [Unknown]

NARRATIVE: CASE EVENT DATE: 20241101
